FAERS Safety Report 6691423-9 (Version None)
Quarter: 2010Q2

REPORT INFORMATION
  Report Type: 
  Country: None (occurrence: None)
  Receive Date: 20100422
  Receipt Date: 20100412
  Transmission Date: 20101027
  Serious: Yes (Hospitalization)
  Sender: FDA-Public Use
  Company Number: RO-JNJFOC-20100307533

PATIENT
  Sex: Male

DRUGS (1)
  1. REMICADE [Suspect]
     Indication: PROCTOCOLITIS
     Route: 042

REACTIONS (3)
  - CHEST X-RAY ABNORMAL [None]
  - GRANULOMA [None]
  - MEDIASTINUM NEOPLASM [None]
